FAERS Safety Report 16135110 (Version 1)
Quarter: 2019Q1

REPORT INFORMATION
  Report Type: Spontaneous
  Country: DE (occurrence: DE)
  Receive Date: 20190329
  Receipt Date: 20190329
  Transmission Date: 20190418
  Serious: Yes (Other)
  Sender: FDA-Public Use
  Company Number: DE-MYLANLABS-2019M1028269

PATIENT
  Sex: Male

DRUGS (1)
  1. CLOPIDOGREL [Suspect]
     Active Substance: CLOPIDOGREL BISULFATE
     Indication: PRODUCT USED FOR UNKNOWN INDICATION
     Dosage: UNK
     Route: 048
     Dates: start: 201701, end: 2017

REACTIONS (9)
  - Balance disorder [Unknown]
  - Splenomegaly [Unknown]
  - Mantle cell lymphoma [Not Recovered/Not Resolved]
  - Fatigue [Unknown]
  - Arrhythmia [Unknown]
  - Dyspnoea [Unknown]
  - Blood test abnormal [Unknown]
  - Quality of life decreased [Unknown]
  - Night sweats [Unknown]

NARRATIVE: CASE EVENT DATE: 2017
